FAERS Safety Report 5220693-9 (Version None)
Quarter: 2007Q1

REPORT INFORMATION
  Report Type: 
  Country: None (occurrence: None)
  Receive Date: 20070125
  Receipt Date: 20070125
  Transmission Date: 20070707
  Serious: Yes (Other)
  Sender: FDA-Public Use
  Company Number: None

PATIENT
  Age: 48 Year
  Sex: Female
  Weight: 87.5442 kg

DRUGS (1)
  1. FEXOFENADINE 180 MG [Suspect]
     Indication: RHINITIS ALLERGIC
     Dosage: 180MG PO QD
     Route: 048
     Dates: start: 20061129

REACTIONS (3)
  - DYSGEUSIA [None]
  - NAUSEA [None]
  - PHARMACEUTICAL PRODUCT COMPLAINT [None]
